FAERS Safety Report 15313086 (Version 2)
Quarter: 2018Q3

REPORT INFORMATION
  Report Type: Spontaneous
  Country: US (occurrence: US)
  Receive Date: 20180823
  Receipt Date: 20180827
  Transmission Date: 20181010
  Serious: Yes (Other)
  Sender: FDA-Public Use
  Company Number: US-PFIZER INC-2018338444

PATIENT
  Age: 45 Year
  Sex: Female
  Weight: 97.7 kg

DRUGS (2)
  1. LYRICA [Suspect]
     Active Substance: PREGABALIN
     Indication: NEURALGIA
     Dosage: 150 MG, 3X/DAY
     Route: 048
     Dates: start: 2007
  2. METHADONE [Concomitant]
     Active Substance: METHADONE HYDROCHLORIDE
     Indication: PAIN
     Dosage: UNK

REACTIONS (7)
  - Somnolence [Unknown]
  - Drug dose omission [Unknown]
  - Headache [Unknown]
  - Asthma [Unknown]
  - Seizure [Unknown]
  - Anxiety [Unknown]
  - Depression [Unknown]
